FAERS Safety Report 8417998-7 (Version None)
Quarter: 2012Q2

REPORT INFORMATION
  Report Type: 
  Country: None (occurrence: None)
  Receive Date: 20120531
  Receipt Date: 20120518
  Transmission Date: 20120825
  Serious: Yes (Hospitalization, Other)
  Sender: FDA-Public Use
  Company Number: 2012P1029135

PATIENT
  Age: 72 Year
  Sex: Female
  Weight: 62.5964 kg

DRUGS (13)
  1. ALPRAZOLAM [Concomitant]
  2. ACETAMINOPHEN [Concomitant]
  3. SINGULAIR [Concomitant]
  4. VITAMIN D [Concomitant]
  5. BACLOFEN [Concomitant]
  6. UNSPECIFIED ALZHEIMER'S MEDICATION [Concomitant]
  7. ASCORBIC ACID [Concomitant]
  8. MAXAIR [Suspect]
     Indication: ASTHMA
     Dosage: 1-2 PUFFS;QD
  9. ADVAIR DISKUS 100/50 [Concomitant]
  10. VITAMIN E [Concomitant]
  11. CHILDREN'S BENADRYL ALLERGY [Concomitant]
  12. SEREVENT [Concomitant]
  13. FLOVENT [Concomitant]

REACTIONS (35)
  - CHEST DISCOMFORT [None]
  - INCORRECT DOSE ADMINISTERED BY DEVICE [None]
  - GALLBLADDER DISORDER [None]
  - HIATUS HERNIA [None]
  - DYSPNOEA [None]
  - HAEMATOCRIT DECREASED [None]
  - RENAL FAILURE CHRONIC [None]
  - CHRONIC RESPIRATORY FAILURE [None]
  - DRUG INEFFECTIVE [None]
  - ANXIETY DISORDER [None]
  - INSOMNIA [None]
  - HYPERPARATHYROIDISM [None]
  - BLOOD PRESSURE ABNORMAL [None]
  - PRODUCT QUALITY ISSUE [None]
  - ANEURYSM [None]
  - NERVOUSNESS [None]
  - CHEST PAIN [None]
  - RENAL ATROPHY [None]
  - HAEMOGLOBIN DECREASED [None]
  - FEELING JITTERY [None]
  - COUGH [None]
  - NASAL CONGESTION [None]
  - HEPATIC CYST [None]
  - WHEEZING [None]
  - CATARACT [None]
  - PNEUMONIA [None]
  - TREMOR [None]
  - INCREASED UPPER AIRWAY SECRETION [None]
  - DEVICE MALFUNCTION [None]
  - VITAMIN D DEFICIENCY [None]
  - PRODUCT TASTE ABNORMAL [None]
  - CHRONIC OBSTRUCTIVE PULMONARY DISEASE [None]
  - MUSCLE SPASMS [None]
  - HYPERCAPNIA [None]
  - ACIDOSIS [None]
